FAERS Safety Report 21358915 (Version 1)
Quarter: 2022Q3

REPORT INFORMATION
  Report Type: Spontaneous
  Country: US (occurrence: None)
  Receive Date: 20220920
  Receipt Date: 20220920
  Transmission Date: 20221026
  Serious: No
  Sender: FDA-Public Use
  Company Number: None

PATIENT
  Age: 76 Year
  Sex: Female

DRUGS (1)
  1. CAPECITABINE [Suspect]
     Active Substance: CAPECITABINE
     Indication: Breast cancer
     Dosage: TAKE 3 TABLETS BY MOUTH TWICE DAILY FOR 2 WEEKS THEN 1 WEEK OFF AS DIRECTED?
     Route: 048
     Dates: start: 202108

REACTIONS (1)
  - Hospitalisation [None]
